FAERS Safety Report 5035101-0 (Version None)
Quarter: 2006Q2

REPORT INFORMATION
  Report Type: 
  Country: None (occurrence: None)
  Receive Date: 20060519
  Receipt Date: 20060131
  Transmission Date: 20061013
  Serious: No
  Sender: FDA-Public Use
  Company Number: TPA2006A00188

PATIENT
  Age: 65 Year
  Sex: Male
  Weight: 84.8226 kg

DRUGS (1)
  1. ROZEREM [Suspect]
     Indication: INSOMNIA
     Dosage: 8 MG, HS, PER ORAL
     Route: 048
     Dates: start: 20060129, end: 20060130

REACTIONS (2)
  - DISORIENTATION [None]
  - DIZZINESS [None]
